FAERS Safety Report 4280215-6 (Version None)
Quarter: 2004Q1

REPORT INFORMATION
  Report Type: 
  Country: None (occurrence: None)
  Receive Date: 20040128
  Receipt Date: 20031113
  Transmission Date: 20041129
  Serious: Yes (Other)
  Sender: FDA-Public Use
  Company Number: PHBS2003ES12725

PATIENT
  Age: 59 Year
  Sex: Male

DRUGS (1)
  1. CYCLOSPORINE [Suspect]
     Indication: BONE MARROW TRANSPLANT
     Route: 065

REACTIONS (9)
  - BIOPSY KIDNEY ABNORMAL [None]
  - BLOOD ALBUMIN DECREASED [None]
  - GLOMERULONEPHRITIS MEMBRANOUS [None]
  - GRAFT VERSUS HOST DISEASE [None]
  - HEPATIC ENZYME INCREASED [None]
  - INFLAMMATION [None]
  - NEPHROTIC SYNDROME [None]
  - PROTEIN URINE PRESENT [None]
  - RENAL INTERSTITIAL FIBROSIS [None]
